FAERS Safety Report 9744082 (Version 1)
Quarter: 2013Q4

REPORT INFORMATION
  Report Type: Spontaneous
  Country: GB (occurrence: GB)
  Receive Date: 20131210
  Receipt Date: 20131210
  Transmission Date: 20140711
  Serious: Yes (Other)
  Sender: FDA-Public Use
  Company Number: GB-BRISTOL-MYERS SQUIBB COMPANY-19873538

PATIENT
  Sex: Female

DRUGS (6)
  1. ORENCIA [Suspect]
     Dates: start: 201112, end: 2013
  2. HYDROXYCHLOROQUINE [Concomitant]
     Dosage: REDUCED TO OD IN FEB 1995
     Dates: start: 1994
  3. METHYLPREDNISOLONE [Concomitant]
     Route: 042
     Dates: start: 200609
  4. MYCOPHENOLATE MOFETIL [Concomitant]
     Dosage: JAN10 DOSE INCREASED TO 1G,BID
     Dates: start: 200711
  5. CLEXANE [Concomitant]
     Indication: CONVULSION
     Dates: start: 200807
  6. RITUXIMAB [Concomitant]
     Dosage: SEP07,JUN08,JUL09,MAY10
     Dates: start: 200709

REACTIONS (1)
  - Status epilepticus [Unknown]
